FAERS Safety Report 8401402-9 (Version None)
Quarter: 2012Q2

REPORT INFORMATION
  Report Type: 
  Country: None (occurrence: None)
  Receive Date: 20120601
  Receipt Date: 20120529
  Transmission Date: 20120825
  Serious: Yes (Death, Other)
  Sender: FDA-Public Use
  Company Number: PHHY2012BR046272

PATIENT
  Sex: Male

DRUGS (2)
  1. FORMOTEROL FUMARATE [Suspect]
     Dosage: 1 DF (12/400 MCG), UNK
  2. EXFORGE [Suspect]
     Dosage: 1 DF (160/5 MG), UNK

REACTIONS (3)
  - GASTRIC DISORDER [None]
  - ROAD TRAFFIC ACCIDENT [None]
  - DEATH [None]
